FAERS Safety Report 5869606-7 (Version None)
Quarter: 2008Q3

REPORT INFORMATION
  Report Type: 
  Country: None (occurrence: None)
  Receive Date: 20080904
  Receipt Date: 20070723
  Transmission Date: 20090109
  Serious: No
  Sender: FDA-Public Use
  Company Number: US-KINGPHARMUSA00001-K200700937

PATIENT

DRUGS (3)
  1. CYTOMEL [Suspect]
     Indication: HYPOTHYROIDISM
     Dosage: 25 MCG, QD
     Dates: start: 20070701
  2. LORAZEPAM [Concomitant]
     Dosage: 1 MG, QD
     Dates: start: 20070401
  3. CORTISOL / ECHINACEA [Concomitant]
     Indication: BLOOD CORTISOL DECREASED
     Dosage: 2.5 MG, UNK

REACTIONS (4)
  - FATIGUE [None]
  - FEELING ABNORMAL [None]
  - INFLUENZA LIKE ILLNESS [None]
  - MALAISE [None]
